FAERS Safety Report 5254999-4 (Version None)
Quarter: 2007Q1

REPORT INFORMATION
  Report Type: 
  Country: None (occurrence: None)
  Receive Date: 20070305
  Receipt Date: 20070223
  Transmission Date: 20070707
  Serious: Yes (Life-Threatening)
  Sender: FDA-Public Use
  Company Number: HQWYE842103AUG06

PATIENT
  Sex: Male

DRUGS (13)
  1. PROTONIX [Suspect]
     Indication: DYSPEPSIA
     Dosage: UNKNOWN
     Route: 048
     Dates: start: 20060101, end: 20060101
  2. PROTONIX [Suspect]
     Indication: GASTROOESOPHAGEAL REFLUX DISEASE
     Dosage: 40 MG
     Route: 048
     Dates: start: 20060801, end: 20060801
  3. PROSCAR [Concomitant]
  4. ZOCOR [Concomitant]
  5. RITALIN [Concomitant]
  6. LASIX [Concomitant]
     Dosage: 20 MG, FREQUENCY UNKNOWN
  7. CIPRO [Concomitant]
  8. FLONASE [Concomitant]
     Dosage: UNKNOWN
  9. MOBIC [Concomitant]
     Dosage: UNKNOWN
  10. BENICAR [Concomitant]
     Dosage: UNKNOWN
  11. SINGULAIR [Concomitant]
  12. CELEXA [Concomitant]
  13. LACTULOSE [Concomitant]

REACTIONS (8)
  - DYSPNOEA [None]
  - FLUSHING [None]
  - HYPERSENSITIVITY [None]
  - PRURITUS [None]
  - RASH [None]
  - SKIN BURNING SENSATION [None]
  - SYNCOPE [None]
  - THROAT TIGHTNESS [None]
